FAERS Safety Report 5608868-8 (Version None)
Quarter: 2008Q1

REPORT INFORMATION
  Report Type: 
  Country: None (occurrence: None)
  Receive Date: 20080131
  Receipt Date: 20080124
  Transmission Date: 20080703
  Serious: Yes (Life-Threatening)
  Sender: FDA-Public Use
  Company Number: DE-BAYER-200811823GPV

PATIENT
  Age: 35 Year
  Sex: Male
  Weight: 75 kg

DRUGS (1)
  1. AVELOX [Suspect]
     Indication: PNEUMONIA
     Route: 042
     Dates: start: 20071231, end: 20080102

REACTIONS (3)
  - LONG QT SYNDROME [None]
  - VENTRICULAR FIBRILLATION [None]
  - VENTRICULAR TACHYCARDIA [None]
